FAERS Safety Report 24438125 (Version 2)
Quarter: 2025Q1

REPORT INFORMATION
  Report Type: Spontaneous
  Country: US (occurrence: US)
  Receive Date: 20241015
  Receipt Date: 20250117
  Transmission Date: 20250409
  Serious: No
  Sender: THERATECHNOLOGIES
  Company Number: US-THERATECHNOLOGIES INC.-2024-THE-TES-000395

PATIENT

DRUGS (4)
  1. EGRIFTA SV [Suspect]
     Active Substance: TESAMORELIN ACETATE
     Indication: Lipodystrophy acquired
     Dosage: 1.4 MG, QD ,0.35 ML OF THE RECONSTITUTED SOLUTION INJECTED SUBCUTANEOUSLY, ONCE DAILY
     Route: 058
     Dates: start: 20240924
  2. EGRIFTA SV [Suspect]
     Active Substance: TESAMORELIN ACETATE
     Dosage: 1.4 MG, QD ,0.35 ML OF THE RECONSTITUTED SOLUTION INJECTED SUBCUTANEOUSLY, ONCE DAILY
     Route: 058
     Dates: end: 20241224
  3. EGRIFTA SV [Suspect]
     Active Substance: TESAMORELIN ACETATE
     Dosage: 1.4 MG, QD ,0.35 ML OF THE RECONSTITUTED SOLUTION INJECTED SUBCUTANEOUSLY, ONCE DAILY
     Route: 058
     Dates: start: 20241226, end: 20241231
  4. EGRIFTA SV [Suspect]
     Active Substance: TESAMORELIN ACETATE
     Dosage: 1.4 MG, QD ,0.35 ML OF THE RECONSTITUTED SOLUTION INJECTED SUBCUTANEOUSLY, ONCE DAILY
     Route: 058
     Dates: start: 20250102

REACTIONS (5)
  - Product dose omission issue [Unknown]
  - Therapeutic product effect incomplete [Unknown]
  - Injection site mass [Recovered/Resolved]
  - Product dose omission issue [Unknown]
  - Product dose omission issue [Unknown]

NARRATIVE: CASE EVENT DATE: 20240924
